FAERS Safety Report 9925267 (Version 2)
Quarter: 2014Q1

REPORT INFORMATION
  Report Type: Spontaneous
  Country: US (occurrence: US)
  Receive Date: 20140226
  Receipt Date: 20140226
  Transmission Date: 20141002
  Serious: Yes (Hospitalization)
  Sender: FDA-Public Use
  Company Number: US-BRACCO-010387

PATIENT
  Age: 73 Year
  Sex: Male
  Weight: 97 kg

DRUGS (17)
  1. NICOTINE [Concomitant]
  2. NITROGLYCERINE [Concomitant]
  3. GLYBURIDE [Concomitant]
  4. PIPERACILLIN [Concomitant]
  5. AMITRIPTYLINE [Concomitant]
  6. ISOVUE 370 [Suspect]
     Indication: ANGIOGRAM
     Route: 042
     Dates: start: 20131223, end: 20131223
  7. ASPIRIN [Concomitant]
  8. INSULIN [Concomitant]
  9. SODIUM CHLORIDE [Concomitant]
  10. ALBUTEROL [Concomitant]
  11. AMLODIPINE [Concomitant]
  12. DOPAMINE [Concomitant]
  13. VANCOMYCIN [Concomitant]
  14. METHYLPREDNISOLONE [Concomitant]
  15. ROSUVASTATIN [Concomitant]
  16. CARVEDILOL [Concomitant]
  17. LEVALBUTEROL [Concomitant]

REACTIONS (2)
  - Cardio-respiratory arrest [Recovered/Resolved]
  - Dyspnoea [Recovering/Resolving]
